FAERS Safety Report 6657835-4 (Version None)
Quarter: 2010Q1

REPORT INFORMATION
  Report Type: 
  Country: None (occurrence: None)
  Receive Date: 20100330
  Receipt Date: 20100323
  Transmission Date: 20100710
  Serious: Yes (Other)
  Sender: FDA-Public Use
  Company Number: BR-ROCHE-682749

PATIENT
  Sex: Female
  Weight: 65 kg

DRUGS (2)
  1. ROFERON-A [Suspect]
     Indication: MULTIPLE SCLEROSIS
     Dosage: EVERY MONDAY, MEDICATION WAS ADMINISTERED IN DIFFERENT APPLICATION SITES, STOP DAT: 2010
     Route: 065
     Dates: start: 20080101
  2. PARACETAMOL [Concomitant]
     Indication: PROPHYLAXIS
     Dosage: INDICATION: TO AVOID FEVER OR ADVERSE EVENTS RELATED TO ROFERON A.
     Route: 048
     Dates: start: 20080101

REACTIONS (1)
  - BREAST CANCER [None]
